FAERS Safety Report 10756027 (Version 1)
Quarter: 2015Q1

REPORT INFORMATION
  Report Type: Spontaneous
  Country: ES (occurrence: ES)
  Receive Date: 20150202
  Receipt Date: 20150202
  Transmission Date: 20150721
  Serious: Yes (Death, Hospitalization)
  Sender: FDA-Public Use
  Company Number: ES-MYLANLABS-2015M1002656

PATIENT

DRUGS (1)
  1. DICLOFENAC [Suspect]
     Active Substance: DICLOFENAC
     Route: 030

REACTIONS (5)
  - Sepsis [Fatal]
  - Urinary tract infection [Fatal]
  - Pyomyositis [Unknown]
  - Haematoma [Unknown]
  - Pneumonia [Fatal]
